FAERS Safety Report 15374897 (Version 1)
Quarter: 2018Q3

REPORT INFORMATION
  Report Type: Spontaneous
  Country: FR (occurrence: FR)
  Receive Date: 20180912
  Receipt Date: 20180912
  Transmission Date: 20181010
  Serious: Yes (Hospitalization)
  Sender: FDA-Public Use
  Company Number: FR-ORPHAN EUROPE-2054866

PATIENT
  Age: 23 Year
  Sex: Female
  Weight: 41.5 kg

DRUGS (4)
  1. CARBAGLU [Suspect]
     Active Substance: CARGLUMIC ACID
     Indication: METHYLMALONIC ACIDURIA
     Dates: start: 20180417, end: 20180504
  2. XENAZINE [Concomitant]
     Active Substance: TETRABENAZINE
  3. PRODUCT NAME: PAEDIATRIC SERAVIT?GENERIC NAME: MALTODEXTRIN, MINERALS [Concomitant]
  4. LEVOCARNITINE. [Concomitant]
     Active Substance: LEVOCARNITINE

REACTIONS (2)
  - Dehydration [Recovered/Resolved]
  - Diarrhoea [Recovered/Resolved]

NARRATIVE: CASE EVENT DATE: 20180502
